FAERS Safety Report 16100301 (Version 1)
Quarter: 2019Q1

REPORT INFORMATION
  Report Type: Spontaneous
  Country: PT (occurrence: PT)
  Receive Date: 20190321
  Receipt Date: 20190321
  Transmission Date: 20190418
  Serious: Yes (Other)
  Sender: FDA-Public Use
  Company Number: IND-PT-009507513-1903PRT007490

PATIENT
  Age: 45 Year
  Sex: Male

DRUGS (1)
  1. EXXIV 90 MG FILM-COATED TABLETS [Suspect]
     Active Substance: ETORICOXIB
     Indication: PAIN
     Dosage: 90 MILLIGRAM, QD
     Route: 048
     Dates: start: 201805, end: 201805

REACTIONS (3)
  - Aphthous ulcer [Recovered/Resolved]
  - Lip oedema [Recovered/Resolved]
  - Pharyngeal ulceration [Recovered/Resolved]

NARRATIVE: CASE EVENT DATE: 201805
